FAERS Safety Report 8861309 (Version 1)
Quarter: 2012Q4

REPORT INFORMATION
  Report Type: 
  Country: US (occurrence: US)
  Receive Date: 20121026
  Receipt Date: 20121026
  Transmission Date: 20130627
  Serious: No
  Sender: FDA-Public Use
  Company Number: US-PFIZER INC-2012265968

PATIENT
  Sex: Male

DRUGS (1)
  1. DOXAZOSIN MESILATE [Suspect]
     Indication: PROSTATIC DISORDER
     Dosage: 8 mg, 1x/day
     Dates: start: 201210

REACTIONS (3)
  - Visual impairment [Unknown]
  - Abnormal sensation in eye [Unknown]
  - Strabismus [Unknown]
